FAERS Safety Report 18702245 (Version 4)
Quarter: 2021Q2

REPORT INFORMATION
  Report Type: Report from Study
  Country: CN (occurrence: CN)
  Receive Date: 20210105
  Receipt Date: 20210618
  Transmission Date: 20210717
  Serious: Yes (Hospitalization)
  Sender: FDA-Public Use
  Company Number: CN-ASTRAZENECA-2020SF75257

PATIENT
  Age: 20591 Day
  Sex: Female

DRUGS (28)
  1. DURVALUMAB. [Suspect]
     Active Substance: DURVALUMAB
     Indication: CERVIX CARCINOMA
     Route: 042
     Dates: start: 20210125, end: 20210125
  2. DURVALUMAB. [Suspect]
     Active Substance: DURVALUMAB
     Indication: CERVIX CARCINOMA
     Route: 042
     Dates: start: 20210220, end: 20210220
  3. CISPLATIN. [Suspect]
     Active Substance: CISPLATIN
     Indication: CERVIX CARCINOMA
     Route: 042
     Dates: start: 20201027, end: 20201027
  4. CISPLATIN. [Suspect]
     Active Substance: CISPLATIN
     Indication: CERVIX CARCINOMA
     Route: 042
     Dates: start: 20201127, end: 20201127
  5. RECOMBINANT HUMAN INTERLEUKIN?11 FOR INJECTION [Concomitant]
     Indication: PLATELET COUNT DECREASED
     Route: 058
     Dates: start: 20201216, end: 20201220
  6. DURVALUMAB. [Suspect]
     Active Substance: DURVALUMAB
     Indication: CERVIX CARCINOMA
     Route: 042
     Dates: start: 20201013, end: 20201013
  7. DURVALUMAB. [Suspect]
     Active Substance: DURVALUMAB
     Indication: CERVIX CARCINOMA
     Route: 042
     Dates: start: 20201119, end: 20201119
  8. DURVALUMAB. [Suspect]
     Active Substance: DURVALUMAB
     Indication: CERVIX CARCINOMA
     Route: 042
     Dates: start: 20201231, end: 20201231
  9. DURVALUMAB. [Suspect]
     Active Substance: DURVALUMAB
     Indication: CERVIX CARCINOMA
     Route: 042
     Dates: start: 20210415, end: 20210415
  10. MUCOPOLYSACCHARIDE POLYSULFATE CREAM [Concomitant]
     Indication: PHLEBITIS
     Dosage: 14.0G ONCE/SINGLE ADMINISTRATION
     Route: 061
     Dates: start: 20201027, end: 20201128
  11. RECOMBINANT HUMAN GRANULOCYTE COLONY?STIMULATING FACTOR INJECTION [Concomitant]
     Indication: WHITE BLOOD CELL COUNT DECREASED
     Dosage: 300.0UG ONCE/SINGLE ADMINISTRATION
     Route: 058
     Dates: start: 20201228, end: 20201229
  12. SUSPENDED RED BLOOD CELLS [Concomitant]
     Indication: ANAEMIA
     Dosage: 2.0IU ONCE/SINGLE ADMINISTRATION
     Route: 042
     Dates: start: 20201222, end: 20201223
  13. CISPLATIN. [Suspect]
     Active Substance: CISPLATIN
     Indication: CERVIX CARCINOMA
     Route: 042
     Dates: start: 20201119, end: 20201119
  14. RECOMBINANT HUMAN GRANULOCYTE COLONY?STIMULATING FACTOR INJECTION [Concomitant]
     Indication: WHITE BLOOD CELL COUNT DECREASED
     Dosage: 300.0UG ONCE/SINGLE ADMINISTRATION
     Route: 058
     Dates: start: 20201222, end: 20201223
  15. CAFFEIC ACID TABLETS [Concomitant]
     Indication: PLATELET COUNT DECREASED
     Route: 048
     Dates: start: 20201224, end: 20210104
  16. DURVALUMAB. [Suspect]
     Active Substance: DURVALUMAB
     Indication: CERVIX CARCINOMA
     Route: 042
     Dates: start: 20210318, end: 20210318
  17. DURVALUMAB. [Suspect]
     Active Substance: DURVALUMAB
     Indication: CERVIX CARCINOMA
     Route: 042
     Dates: start: 20210513, end: 20210513
  18. ONDANSETRON HYDROCHLORIDE TABLETS [Concomitant]
     Active Substance: ONDANSETRON HYDROCHLORIDE
     Indication: ANTIBIOTIC PROPHYLAXIS
     Route: 048
     Dates: start: 20201127, end: 20201129
  19. DEXAMETHASONE SODIUM PHOSPHATE INJECTION [Concomitant]
     Active Substance: DEXAMETHASONE SODIUM PHOSPHATE
     Indication: ALLERGY PROPHYLAXIS
     Dosage: 10.0MG ONCE/SINGLE ADMINISTRATION
     Route: 042
     Dates: start: 20201222, end: 20201223
  20. CISPLATIN. [Suspect]
     Active Substance: CISPLATIN
     Indication: CERVIX CARCINOMA
     Route: 042
     Dates: start: 20201020, end: 20201020
  21. MUCOPOLYSACCHARIDE POLYSULFATE CREAM [Concomitant]
     Indication: RASH
     Dosage: 14.0G ONCE/SINGLE ADMINISTRATION
     Route: 061
     Dates: start: 20201027, end: 20201128
  22. RECOMBINANT HUMAN INTERLEUKIN?11 FOR INJECTION [Concomitant]
     Indication: PLATELET COUNT DECREASED
     Route: 058
     Dates: start: 20201228, end: 20201229
  23. CISPLATIN. [Suspect]
     Active Substance: CISPLATIN
     Indication: CERVIX CARCINOMA
     Route: 042
     Dates: start: 20201103, end: 20201103
  24. ONDANSETRON HYDROCHLORIDE TABLETS [Concomitant]
     Active Substance: ONDANSETRON HYDROCHLORIDE
     Indication: VOMITING
     Route: 048
     Dates: start: 20201127, end: 20201129
  25. RECOMBINANT HUMAN GRANULOCYTE COLONY?STIMULATING FACTOR INJECTION [Concomitant]
     Indication: WHITE BLOOD CELL COUNT DECREASED
     Dosage: 300.0UG ONCE/SINGLE ADMINISTRATION
     Route: 058
     Dates: start: 20201222, end: 20201223
  26. RECOMBINANT HUMAN INTERLEUKIN?11 FOR INJECTION [Concomitant]
     Indication: PLATELET COUNT DECREASED
     Route: 058
     Dates: start: 20201222, end: 20201227
  27. CISPLATIN. [Suspect]
     Active Substance: CISPLATIN
     Indication: CERVIX CARCINOMA
     Route: 042
     Dates: start: 20201013, end: 20201013
  28. RECOMBINANT HUMAN GRANULOCYTE COLONY?STIMULATING FACTOR INJECTION [Concomitant]
     Indication: WHITE BLOOD CELL COUNT DECREASED
     Dosage: 300.0UG ONCE/SINGLE ADMINISTRATION
     Route: 058
     Dates: start: 20201228, end: 20201229

REACTIONS (2)
  - White blood cell count decreased [Recovered/Resolved]
  - Neutrophil count decreased [Recovered/Resolved]

NARRATIVE: CASE EVENT DATE: 20201228
